FAERS Safety Report 21131347 (Version 1)
Quarter: 2022Q3

REPORT INFORMATION
  Report Type: Spontaneous
  Country: TR (occurrence: TR)
  Receive Date: 20220726
  Receipt Date: 20220726
  Transmission Date: 20221027
  Serious: Yes (Life-Threatening, Other)
  Sender: FDA-Public Use
  Company Number: TR-009507513-2207TUR000180

PATIENT
  Age: 53 Year
  Sex: Female
  Weight: 79.3 kg

DRUGS (4)
  1. TEMODAL [Suspect]
     Active Substance: TEMOZOLOMIDE
     Indication: Brain neoplasm
     Dosage: 140 MILLIGRAM, QD
     Route: 048
     Dates: start: 20220523, end: 20220629
  2. DEXAMETHASONE [Concomitant]
     Active Substance: DEXAMETHASONE
  3. KEPPRA [Concomitant]
     Active Substance: LEVETIRACETAM
  4. NEXIUM I.V. [Concomitant]
     Active Substance: ESOMEPRAZOLE SODIUM

REACTIONS (3)
  - Thrombocytopenia [Not Recovered/Not Resolved]
  - Neutropenia [Not Recovered/Not Resolved]
  - Anaemia [Not Recovered/Not Resolved]

NARRATIVE: CASE EVENT DATE: 20220630
